FAERS Safety Report 19687473 (Version 2)
Quarter: 2021Q3

REPORT INFORMATION
  Report Type: Spontaneous
  Country: JP (occurrence: JP)
  Receive Date: 20210812
  Receipt Date: 20210908
  Transmission Date: 20211014
  Serious: Yes (Hospitalization)
  Sender: FDA-Public Use
  Company Number: JP-ROCHE-2888062

PATIENT
  Age: 8 Decade
  Sex: Female

DRUGS (2)
  1. AVASTIN [Suspect]
     Active Substance: BEVACIZUMAB
     Indication: HEPATOCELLULAR CARCINOMA
     Route: 041
     Dates: start: 202101, end: 20210506
  2. TECENTRIQ [Suspect]
     Active Substance: ATEZOLIZUMAB
     Indication: HEPATOCELLULAR CARCINOMA
     Route: 041
     Dates: start: 202101, end: 20210506

REACTIONS (4)
  - Rhabdomyolysis [Not Recovered/Not Resolved]
  - Abdominal pain upper [Unknown]
  - Hypothyroidism [Unknown]
  - Zinc deficiency [Unknown]

NARRATIVE: CASE EVENT DATE: 2021
